FAERS Safety Report 9553850 (Version 1)
Quarter: 2013Q3

REPORT INFORMATION
  Report Type: Spontaneous
  Country: US (occurrence: US)
  Receive Date: 20130925
  Receipt Date: 20130925
  Transmission Date: 20140515
  Serious: Yes (Other)
  Sender: FDA-Public Use
  Company Number: US-ASTRAZENECA-2013SE69806

PATIENT
  Sex: Female

DRUGS (4)
  1. BRILINTA [Suspect]
     Indication: ACUTE CORONARY SYNDROME
     Route: 048
  2. BRILINTA [Suspect]
     Indication: ACUTE CORONARY SYNDROME
     Route: 048
  3. ASPIRIN [Concomitant]
  4. ASPIRIN [Concomitant]

REACTIONS (2)
  - Faeces discoloured [Recovered/Resolved]
  - Gastrointestinal haemorrhage [Recovered/Resolved]
